FAERS Safety Report 6218984-8 (Version None)
Quarter: 2009Q2

REPORT INFORMATION
  Report Type: 
  Country: None (occurrence: None)
  Receive Date: 20090608
  Receipt Date: 20090604
  Transmission Date: 20091009
  Serious: Yes (Death)
  Sender: FDA-Public Use
  Company Number: PHHY2009CL22014

PATIENT
  Age: 95 Year
  Sex: Female

DRUGS (1)
  1. TAREG D [Suspect]
     Dosage: 160 MG

REACTIONS (1)
  - DEATH [None]
